FAERS Safety Report 14591022 (Version 1)
Quarter: 2018Q1

REPORT INFORMATION
  Report Type: Spontaneous
  Country: US (occurrence: US)
  Receive Date: 20180301
  Receipt Date: 20180301
  Transmission Date: 20180509
  Serious: Yes (Other)
  Sender: FDA-Public Use
  Company Number: None

PATIENT
  Age: 66 Year
  Sex: Male
  Weight: 126.1 kg

DRUGS (8)
  1. ALUBTEROL 2.5 MG / 3 ML NEBULIZER [Concomitant]
  2. NORMAL SALINE 0.9% 250 MLS [Concomitant]
  3. ACETAMINOPHEN 650 MG [Concomitant]
     Active Substance: ACETAMINOPHEN
  4. DIPHENHYDRAMINE 25 MG [Concomitant]
     Dates: end: 20180227
  5. IBUPROFEN 200 MG PRN [Concomitant]
  6. INDOMETHACIN 25 MG [Concomitant]
  7. CLOCHICINE 0.6 MG [Concomitant]
     Dates: start: 20180212, end: 20180228
  8. PEGLOTICASE [Suspect]
     Active Substance: PEGLOTICASE
     Indication: GOUT
     Dosage: ?          OTHER FREQUENCY:EVERY 2 WEEKS;?
     Route: 042
     Dates: start: 20180212, end: 20180228

REACTIONS (5)
  - Abdominal pain [None]
  - Chest pain [None]
  - Paraesthesia [None]
  - Burning sensation [None]
  - Nausea [None]

NARRATIVE: CASE EVENT DATE: 20180228
